FAERS Safety Report 8811446 (Version 1)
Quarter: 2012Q4

REPORT INFORMATION
  Report Type: 
  Country: IT (occurrence: IT)
  Receive Date: 20120927
  Receipt Date: 20120927
  Transmission Date: 20130627
  Serious: Yes (Life-Threatening, Hospitalization)
  Sender: FDA-Public Use
  Company Number: IT-SANOFI-AVENTIS-2012SA067733

PATIENT
  Age: 38 Year
  Sex: Male

DRUGS (2)
  1. HEPARIN SODIUM [Suspect]
     Indication: PROPHYLAXIS
     Route: 042
  2. ENOXAPARIN SODIUM [Suspect]
     Indication: PROPHYLAXIS
     Route: 065

REACTIONS (12)
  - Heparin-induced thrombocytopenia [Recovered/Resolved]
  - Platelet count decreased [Recovered/Resolved]
  - Pulmonary embolism [Unknown]
  - Dyspnoea [Unknown]
  - Cerebral infarction [Not Recovered/Not Resolved]
  - Diplopia [Recovered/Resolved]
  - Visual acuity reduced [Not Recovered/Not Resolved]
  - Carotid artery occlusion [Not Recovered/Not Resolved]
  - Central nervous system lesion [Unknown]
  - Pupillary reflex impaired [Not Recovered/Not Resolved]
  - Amaurosis fugax [Unknown]
  - Arterial thrombosis [Unknown]
